FAERS Safety Report 23651131 (Version 1)
Quarter: 2024Q1

REPORT INFORMATION
  Report Type: Spontaneous
  Country: US (occurrence: US)
  Receive Date: 20240320
  Receipt Date: 20240320
  Transmission Date: 20240410
  Serious: Yes (Other)
  Sender: FDA-Public Use
  Company Number: US-JNJFOC-20240330854

PATIENT
  Age: 64 Year

DRUGS (1)
  1. DARZALEX FASPRO [Suspect]
     Active Substance: DARATUMUMAB\HYALURONIDASE-FIHJ
     Indication: Product used for unknown indication
     Route: 065

REACTIONS (3)
  - White blood cell count decreased [Unknown]
  - Platelet count decreased [Unknown]
  - Neutrophil count decreased [Unknown]

NARRATIVE: CASE EVENT DATE: 20240226
